FAERS Safety Report 7967443-0 (Version None)
Quarter: 2011Q4

REPORT INFORMATION
  Report Type: 
  Country: None (occurrence: None)
  Receive Date: 20111209
  Receipt Date: 20111201
  Transmission Date: 20120403
  Serious: No
  Sender: FDA-Public Use
  Company Number: US-B.I. PHARMACEUTICALS,INC./RIDGEFIELD-2011-BP-13329BP

PATIENT
  Sex: Male

DRUGS (12)
  1. ASPIRIN [Concomitant]
     Indication: CARDIAC DISORDER
  2. FLOMAX [Concomitant]
     Indication: BENIGN PROSTATIC HYPERPLASIA
     Route: 048
  3. POTASSIUM ACETATE [Concomitant]
     Indication: SUPPLEMENTATION THERAPY
  4. PRADAXA [Suspect]
     Indication: ATRIAL FIBRILLATION
     Dosage: 300 MG
     Route: 048
     Dates: start: 20110301
  5. HYDROCHLOROTHIAZIDE [Concomitant]
     Indication: HYPERTENSION
     Dosage: 25 MG
     Route: 048
  6. VALIUM [Concomitant]
     Indication: ANXIETY
     Route: 048
  7. NEXIUM [Concomitant]
     Indication: GASTROOESOPHAGEAL REFLUX DISEASE
  8. XALATAN [Concomitant]
     Indication: GLAUCOMA
  9. ASPIRIN [Concomitant]
     Indication: CORONARY ARTERY DISEASE
  10. ATENOLOL [Concomitant]
     Indication: HYPERTENSION
     Route: 048
  11. LISINOPRIL [Concomitant]
     Indication: HYPERTENSION
     Dosage: 15 MG
     Route: 048
  12. POTASSIUM ACETATE [Concomitant]
     Indication: CARDIAC DISORDER
     Route: 048

REACTIONS (3)
  - DIARRHOEA [None]
  - DYSPEPSIA [None]
  - HYPERTENSION [None]
